FAERS Safety Report 8876348 (Version 2)
Quarter: 2012Q4

REPORT INFORMATION
  Report Type: 
  Country: CA (occurrence: CA)
  Receive Date: 20121031
  Receipt Date: 20121205
  Transmission Date: 20130627
  Serious: Yes (Hospitalization, Other)
  Sender: FDA-Public Use
  Company Number: CA-AMGEN-CANSP2012068872

PATIENT
  Age: 70 Year
  Sex: Male

DRUGS (6)
  1. XGEVA [Suspect]
     Indication: PROSTATE CANCER METASTATIC
     Dosage: 120 mg, qmo
     Route: 058
     Dates: start: 20121009, end: 20121009
  2. XGEVA [Suspect]
     Indication: METASTASES TO BONE
  3. CISPLATIN [Suspect]
     Indication: PROSTATE CANCER METASTATIC
     Dosage: 90 mg, q3wk
     Route: 042
     Dates: start: 201208
  4. ETOPOSIDE [Concomitant]
     Indication: PROSTATE CANCER METASTATIC
     Dosage: 180 mg, q3wk
     Route: 042
     Dates: start: 201208
  5. CALCIUM [Concomitant]
  6. VITAMIN D                          /00318501/ [Concomitant]

REACTIONS (2)
  - Convulsion [Recovered/Resolved]
  - Hypocalcaemia [Recovered/Resolved]
